FAERS Safety Report 25762831 (Version 2)
Quarter: 2025Q3

REPORT INFORMATION
  Report Type: Report from Study
  Country: US (occurrence: US)
  Receive Date: 20250904
  Receipt Date: 20250911
  Transmission Date: 20251020
  Serious: No
  Sender: SANOFI AVENTIS
  Company Number: US-SA-2025SA264213

PATIENT
  Age: 71 Year
  Sex: Male

DRUGS (8)
  1. ISATUXIMAB [Suspect]
     Active Substance: ISATUXIMAB
     Indication: Plasma cell myeloma
     Dosage: UNK UNK, QOW; (500MG/25ML, EVERY OTHER WEEK)
     Route: 041
     Dates: start: 20250430, end: 20250812
  2. ACYCLOVIR [Concomitant]
     Active Substance: ACYCLOVIR
  3. ASPIRIN [Concomitant]
     Active Substance: ASPIRIN
  4. DEXAMETHASONE [Concomitant]
     Active Substance: DEXAMETHASONE
  5. HYDROCODONE [Concomitant]
     Active Substance: HYDROCODONE
  6. LEVAQUIN [Concomitant]
     Active Substance: LEVOFLOXACIN
  7. REVLIMID [Concomitant]
     Active Substance: LENALIDOMIDE
  8. VELCADE [Concomitant]
     Active Substance: BORTEZOMIB

REACTIONS (1)
  - Toxicity to various agents [Unknown]

NARRATIVE: CASE EVENT DATE: 20250812
